FAERS Safety Report 15311329 (Version 1)
Quarter: 2018Q3

REPORT INFORMATION
  Report Type: Spontaneous
  Country: IT (occurrence: IT)
  Receive Date: 20180823
  Receipt Date: 20180823
  Transmission Date: 20181010
  Serious: Yes (Other)
  Sender: FDA-Public Use
  Company Number: IT-009507513-1808ITA008378

PATIENT
  Age: 76 Year
  Sex: Female

DRUGS (1)
  1. TESAVEL [Suspect]
     Active Substance: SITAGLIPTIN PHOSPHATE
     Dosage: 100 MG, QD
     Route: 048

REACTIONS (3)
  - Vertigo [Unknown]
  - Presyncope [Unknown]
  - Erythema [Unknown]

NARRATIVE: CASE EVENT DATE: 20130430
